FAERS Safety Report 8568759-X (Version None)
Quarter: 2012Q3

REPORT INFORMATION
  Report Type: 
  Country: None (occurrence: None)
  Receive Date: 20120803
  Receipt Date: 20120201
  Transmission Date: 20120928
  Serious: No
  Sender: FDA-Public Use
  Company Number: US-ABBOTT-12P-163-0900482-00

PATIENT
  Sex: Female

DRUGS (2)
  1. ASPIRIN [Concomitant]
     Indication: PROPHYLAXIS
  2. NIASPAN [Suspect]
     Indication: BLOOD CHOLESTEROL INCREASED
     Dates: start: 20080101

REACTIONS (1)
  - FLUSHING [None]
